FAERS Safety Report 18513920 (Version 1)
Quarter: 2020Q4

REPORT INFORMATION
  Report Type: Spontaneous
  Country: US (occurrence: US)
  Receive Date: 20201118
  Receipt Date: 20201118
  Transmission Date: 20210114
  Serious: Yes (Hospitalization, Other)
  Sender: FDA-Public Use
  Company Number: US-LUPIN PHARMACEUTICALS INC.-2020-09095

PATIENT

DRUGS (5)
  1. BETAMETHASONE. [Suspect]
     Active Substance: BETAMETHASONE
     Indication: MATERNAL THERAPY TO ENHANCE FOETAL LUNG MATURITY
     Dosage: UNK
     Route: 064
  2. FLECAINIDE [Suspect]
     Active Substance: FLECAINIDE
     Indication: TACHYCARDIA FOETAL
     Dosage: 100 MILLIGRAM, BID
     Route: 064
  3. DIGOXIN. [Suspect]
     Active Substance: DIGOXIN
     Dosage: 0.25 MILLIGRAM, BID
     Route: 064
  4. URSODIOL. [Suspect]
     Active Substance: URSODIOL
     Indication: CHOLESTASIS
     Dosage: 300 MILLIGRAM, BID
     Route: 064
  5. DIGOXIN. [Suspect]
     Active Substance: DIGOXIN
     Indication: TACHYCARDIA FOETAL
     Dosage: 0.25 MILLIGRAM, TID
     Route: 064

REACTIONS (4)
  - Neonatal tachypnoea [Recovered/Resolved]
  - Foetal exposure during pregnancy [Unknown]
  - Respiratory distress [Recovered/Resolved]
  - Meconium aspiration syndrome [Recovered/Resolved]
